FAERS Safety Report 9437863 (Version 1)
Quarter: 2013Q3

REPORT INFORMATION
  Report Type: Spontaneous
  Country: US (occurrence: US)
  Receive Date: 20130802
  Receipt Date: 20130802
  Transmission Date: 20140515
  Serious: No
  Sender: FDA-Public Use
  Company Number: US-BRISTOL-MYERS SQUIBB COMPANY-18858043

PATIENT
  Age: 70 Year
  Sex: Female
  Weight: 90.7 kg

DRUGS (3)
  1. WARFARIN SODIUM [Suspect]
     Indication: STASIS DERMATITIS
     Dosage: 3,5 MG, 1.5,5 MG, AND 1,5 MG TAB FOR THE REST OF THE WEEK
     Dates: start: 20130411
  2. CEPHALEXIN [Concomitant]
     Indication: CELLULITIS
  3. IBUPROFEN [Concomitant]

REACTIONS (2)
  - International normalised ratio decreased [Unknown]
  - Drug dose omission [Unknown]
